FAERS Safety Report 16411398 (Version 1)
Quarter: 2019Q2

REPORT INFORMATION
  Report Type: Report from Study
  Country: US (occurrence: US)
  Receive Date: 20190610
  Receipt Date: 20190610
  Transmission Date: 20190711
  Serious: No
  Sender: FDA-Public Use
  Company Number: PHEH2019US024334

PATIENT
  Age: 20 Year
  Sex: Male

DRUGS (1)
  1. ILARIS [Suspect]
     Active Substance: CANAKINUMAB
     Indication: CRYOPYRIN ASSOCIATED PERIODIC SYNDROME
     Dosage: 150 MG, UNK (EVERY 6 WEEKS)
     Route: 058

REACTIONS (4)
  - Anxiety [Recovering/Resolving]
  - Depression [Unknown]
  - Concussion [Unknown]
  - Anger [Unknown]

NARRATIVE: CASE EVENT DATE: 20190524
